FAERS Safety Report 8548102-2 (Version None)
Quarter: 2012Q3

REPORT INFORMATION
  Report Type: 
  Country: None (occurrence: None)
  Receive Date: 20120730
  Receipt Date: 20120717
  Transmission Date: 20120928
  Serious: Yes (Hospitalization, Other)
  Sender: FDA-Public Use
  Company Number: BR-AMGEN-BRASP2012042075

PATIENT
  Age: 59 Year
  Sex: Female
  Weight: 81 kg

DRUGS (7)
  1. ENBREL [Suspect]
     Indication: RHEUMATOID ARTHRITIS
     Dosage: 50 MG, ONCE WEEKLY
     Route: 058
     Dates: start: 20111101
  2. CITALOPRAM HYDROBROMIDE [Concomitant]
     Dosage: 40 MG, 1X/DAY
  3. MALENATE [Concomitant]
     Dosage: 20 MG, ONE TABLET IN THE MORNING AND ONE TABLET AT NIGHT, IN ALTERNATE DAY
  4. OMEPRAZOLE [Concomitant]
     Dosage: 40 MG (TWO TABLETS OF 20MG), 2X/DAY
  5. CITALOPRAM HYDROBROMIDE [Concomitant]
     Dosage: 40 MG, 1X/DAY
  6. LEVOTHYROXINE SODIUM [Concomitant]
     Dosage: 75 MG, 1X/DAY
  7. MALENATE [Concomitant]
     Indication: HYPERTENSION
     Dosage: 20 MG, 2X/DAY

REACTIONS (12)
  - PAIN [None]
  - WRONG TECHNIQUE IN DRUG USAGE PROCESS [None]
  - LIMB DISCOMFORT [None]
  - ACUTE SINUSITIS [None]
  - ARTHROPATHY [None]
  - PRURITUS [None]
  - JOINT INJURY [None]
  - APPLICATION SITE PAIN [None]
  - INFLUENZA [None]
  - ARTHRALGIA [None]
  - BURNING SENSATION [None]
  - PAIN IN EXTREMITY [None]
